FAERS Safety Report 6128797-3 (Version None)
Quarter: 2009Q1

REPORT INFORMATION
  Report Type: 
  Country: None (occurrence: None)
  Receive Date: 20090320
  Receipt Date: 20090311
  Transmission Date: 20090719
  Serious: No
  Sender: FDA-Public Use
  Company Number: 2009SP000313

PATIENT
  Age: 95 Year
  Sex: Male
  Weight: 90 kg

DRUGS (7)
  1. LORATADINE [Suspect]
     Indication: PRURITUS
     Dosage: 10 MG; QD; PO
     Route: 048
     Dates: start: 20081101
  2. KARDEGIC [Concomitant]
  3. ARICEPT [Concomitant]
  4. LASIX [Concomitant]
  5. DIANTALVIC [Concomitant]
  6. ZYLORIC [Concomitant]
  7. ZOLPIDEM [Concomitant]

REACTIONS (5)
  - DEPRESSED LEVEL OF CONSCIOUSNESS [None]
  - DISTURBANCE IN ATTENTION [None]
  - HYPERSOMNIA [None]
  - OBSESSIVE THOUGHTS [None]
  - SOMNOLENCE [None]
